FAERS Safety Report 5740430-9 (Version None)
Quarter: 2008Q2

REPORT INFORMATION
  Report Type: 
  Country: None (occurrence: None)
  Receive Date: 20080516
  Receipt Date: 20080516
  Transmission Date: 20081010
  Serious: Yes (Other)
  Sender: FDA-Public Use
  Company Number: A0728233A

PATIENT
  Age: 52 Year
  Sex: Female

DRUGS (6)
  1. ALLI [Suspect]
     Route: 048
     Dates: start: 20080424, end: 20080514
  2. ZOLOFT [Concomitant]
  3. SERTRALINE [Concomitant]
  4. PREVACID [Concomitant]
  5. PRAVASTATIN [Concomitant]
  6. CENTRUM SILVER [Concomitant]

REACTIONS (5)
  - BACK PAIN [None]
  - BLOOD URINE PRESENT [None]
  - NEPHROLITHIASIS [None]
  - PAIN [None]
  - PHARMACEUTICAL PRODUCT COMPLAINT [None]
